FAERS Safety Report 9310683 (Version 3)
Quarter: 2013Q2

REPORT INFORMATION
  Report Type: Report from Study
  Country: DE (occurrence: DE)
  Receive Date: 20130527
  Receipt Date: 20130606
  Transmission Date: 20140414
  Serious: Yes (Hospitalization)
  Sender: FDA-Public Use
  Company Number: DE-ROCHE-1224445

PATIENT
  Age: 63 Year
  Sex: Male
  Weight: 86.5 kg

DRUGS (5)
  1. BEVACIZUMAB [Suspect]
     Indication: COLORECTAL CANCER METASTATIC
     Dosage: LAST DOSE PRIOR TO SAE: 13/MAY/2013, LAST DOSE: 5 MG/KG
     Route: 065
     Dates: start: 20120829
  2. OXALIPLATIN [Suspect]
     Indication: COLORECTAL CANCER METASTATIC
     Dosage: LAST DOSE PRIOR TO SAE: 30/JAN/2013, LAST DOSE: 85 MG/M2
     Route: 065
     Dates: start: 20120829
  3. IRINOTECAN [Suspect]
     Indication: COLORECTAL CANCER METASTATIC
     Dosage: LAST DOSE PRIOR TO SAE: 30/JAN/2013, LAST DOSE: 165 MG/M2
     Route: 065
     Dates: start: 20120829
  4. FLUOROURACIL [Suspect]
     Indication: COLORECTAL CANCER METASTATIC
     Dosage: LAST DOSE PRIOR TO SAE: 13/MAY/2013, LAST DOSE: 3200 MG/M2
     Route: 065
     Dates: start: 20120829
  5. LEUCOVORIN [Suspect]
     Indication: COLORECTAL CANCER METASTATIC
     Dosage: LAST DOSE PRIOR TO SAE: 13/MAY/2013, LAST DOSE: 200 MG/M2
     Route: 065
     Dates: start: 20120829

REACTIONS (3)
  - Biloma [Recovered/Resolved]
  - Pyrexia [Recovered/Resolved]
  - Biloma [Recovered/Resolved]
